FAERS Safety Report 5404917-0 (Version None)
Quarter: 2007Q3

REPORT INFORMATION
  Report Type: 
  Country: None (occurrence: None)
  Receive Date: 20070803
  Receipt Date: 20070802
  Transmission Date: 20080115
  Serious: Yes (Death, Other)
  Sender: FDA-Public Use
  Company Number: AU-BRISTOL-MYERS SQUIBB COMPANY-13865621

PATIENT
  Age: 66 Year
  Sex: Male

DRUGS (5)
  1. TAXOL [Suspect]
     Indication: LUNG NEOPLASM MALIGNANT
     Route: 042
     Dates: start: 20030107, end: 20030212
  2. CARBOPLATIN [Suspect]
     Indication: LUNG NEOPLASM MALIGNANT
     Route: 048
     Dates: start: 20030107, end: 20030212
  3. IRESSA [Suspect]
     Indication: LUNG NEOPLASM MALIGNANT
     Route: 048
     Dates: start: 20030107, end: 20030227
  4. RADIOTHERAPY [Concomitant]
  5. DEXTROAMPHETAMINE SULFATE [Concomitant]

REACTIONS (3)
  - DEHYDRATION [None]
  - HYPOTENSION [None]
  - RESPIRATORY FAILURE [None]
